FAERS Safety Report 21634205 (Version 1)
Quarter: 2022Q4

REPORT INFORMATION
  Report Type: Spontaneous
  Country: CN (occurrence: CN)
  Receive Date: 20221123
  Receipt Date: 20221123
  Transmission Date: 20230113
  Serious: Yes (Hospitalization, Other)
  Sender: FDA-Public Use
  Company Number: CN-BAXTER-2022BAX025186

PATIENT
  Age: 70 Year
  Sex: Male
  Weight: 62 kg

DRUGS (12)
  1. SEVOFLURANE [Suspect]
     Active Substance: SEVOFLURANE
     Indication: Maintenance of anaesthesia
     Dosage: IN 60% OXYGEN WITH AIR
     Route: 065
  2. PROPOFOL [Suspect]
     Active Substance: PROPOFOL
     Indication: Induction and maintenance of anaesthesia
     Dosage: 70 MG PROPOFOL (SINGLE INTRAVENOUS INJECTION AT A RATE OF 20 MG/10S)
     Route: 042
  3. PROPOFOL [Suspect]
     Active Substance: PROPOFOL
     Dosage: BALANCED ANESTHESIA WAS MAINTANED WITH 2-4 MG/KG, 1 PER HOUR
     Route: 042
  4. ROCURONIUM [Suspect]
     Active Substance: ROCURONIUM BROMIDE
     Indication: Endotracheal intubation
     Dosage: 50 MG
     Route: 042
  5. SUFENTANIL [Suspect]
     Active Substance: SUFENTANIL
     Indication: Induction of anaesthesia
     Dosage: 30 UG, LASTING APPROXIMATELY 10 S
     Route: 042
  6. REMIFENTANIL [Suspect]
     Active Substance: REMIFENTANIL
     Indication: Induction and maintenance of anaesthesia
     Dosage: 2-4 UG/KG, 1 PER HOUR
     Route: 042
  7. TRAMADOL [Suspect]
     Active Substance: TRAMADOL
     Indication: Analgesic therapy
     Dosage: 100 MG, 15 MIN BEFORE THE END OF THE OPERATION
     Route: 065
  8. LORNOXICAM [Suspect]
     Active Substance: LORNOXICAM
     Indication: Antiemetic supportive care
     Dosage: 16 MG, 15 MIN BEFORE THE END OF THE OPERATION
     Route: 065
  9. ROPIVACAINE [Suspect]
     Active Substance: ROPIVACAINE
     Indication: Infiltration anaesthesia
     Dosage: INCISION
     Route: 065
  10. OXYGEN [Concomitant]
     Active Substance: OXYGEN
     Dosage: 60 % OXYGEN
     Route: 065
  11. OXYGEN [Concomitant]
     Active Substance: OXYGEN
     Dosage: BY MASK
  12. GRANISETRON [Concomitant]
     Active Substance: GRANISETRON
     Indication: Antiemetic supportive care
     Dosage: 3 MG (SINGLE INTRAVENOUS INJECTION)
     Route: 042

REACTIONS (3)
  - Overdose [Recovered/Resolved]
  - Loss of consciousness [Recovered/Resolved]
  - Delayed recovery from anaesthesia [Recovered/Resolved]
